FAERS Safety Report 10042589 (Version 1)
Quarter: 2014Q1

REPORT INFORMATION
  Report Type: Spontaneous
  Country: GB (occurrence: GB)
  Receive Date: 20140327
  Receipt Date: 20140327
  Transmission Date: 20141002
  Serious: Yes (Hospitalization, Other)
  Sender: FDA-Public Use
  Company Number: PHFR2014GB002338

PATIENT
  Age: 78 Year
  Sex: Male
  Weight: 70 kg

DRUGS (13)
  1. INDACATEROL [Suspect]
     Indication: CHRONIC OBSTRUCTIVE PULMONARY DISEASE
     Dosage: 150 UG, QD
     Route: 055
     Dates: start: 20140216, end: 20140221
  2. ALENDRONIC ACID [Concomitant]
     Dosage: UNK UKN, UNK
  3. BUMETANIDE [Concomitant]
     Dosage: UNK UKN, UNK
  4. DIGOXIN [Concomitant]
     Dosage: UNK UKN, UNK
  5. LEFLUNOMIDE [Concomitant]
     Dosage: UNK UKN, UNK
  6. OMEPRAZOLE [Concomitant]
     Dosage: UNK UKN, UNK
  7. PREDNISOLONE [Concomitant]
     Dosage: UNK UKN, UNK
  8. RAMIPRIL [Concomitant]
     Dosage: UNK UKN, UNK
  9. TIOTROPIUM [Concomitant]
     Dosage: UNK UKN, UNK
  10. VENTOLIN                           /00942701/ [Concomitant]
     Dosage: UNK UKN, UNK
  11. WARFARIN [Concomitant]
     Dosage: UNK UKN, UNK
  12. ZAPAIN [Concomitant]
     Dosage: UNK UKN, UNK
  13. APPETON FOLIC ACID [Concomitant]
     Dosage: UNK UKN, UNK

REACTIONS (4)
  - Angina unstable [Recovering/Resolving]
  - Chest pain [Unknown]
  - Nausea [Unknown]
  - Acute coronary syndrome [Unknown]
